FAERS Safety Report 8869824 (Version 1)
Quarter: 2012Q4

REPORT INFORMATION
  Report Type: 
  Country: US (occurrence: US)
  Receive Date: 20121026
  Receipt Date: 20121026
  Transmission Date: 20130627
  Serious: No
  Sender: FDA-Public Use
  Company Number: US-AMGEN-USASP2012044204

PATIENT
  Sex: Female
  Weight: 99.77 kg

DRUGS (9)
  1. ENBREL [Suspect]
     Indication: PRODUCT USED FOR UNKNOWN INDICATION
     Dosage: 50 UNK, UNK
     Route: 058
  2. METHOTREXATE [Concomitant]
     Indication: PSORIATIC ARTHROPATHY
     Dosage: 2.5 mg, UNK
  3. FOLIC ACID [Concomitant]
  4. VITAMIN B-12 [Concomitant]
     Dosage: 500 mug, UNK
  5. TRAMADOL HCL [Concomitant]
     Dosage: 50 mg, UNK
  6. FLINTSTONES MULTIVITAMINS WITH IRON [Concomitant]
     Dosage: 18 mg, UNK
  7. CALCIUM [Concomitant]
     Dosage: 500 UNK, UNK
  8. VITAMIN D /00107901/ [Concomitant]
     Dosage: 400 UNK, UNK
  9. LEVOTHYROXIN [Concomitant]
     Dosage: 25 mug, UNK

REACTIONS (2)
  - Dry mouth [Unknown]
  - Hypoaesthesia oral [Unknown]
